FAERS Safety Report 10373739 (Version 1)
Quarter: 2014Q1

REPORT INFORMATION
  Report Type: Spontaneous
  Country: US (occurrence: None)
  Receive Date: 20140306
  Receipt Date: 20140306
  Transmission Date: 20141002
  Serious: Yes (Other)
  Sender: FDA-Public Use
  Company Number: 163-21880-13093489

PATIENT
  Age: 84 Year
  Sex: Male

DRUGS (8)
  1. REVLIMID [Suspect]
     Indication: PLASMA CELL MYELOMA
     Dosage: 15 MG, 21 IN 28 D, PO
     Route: 048
     Dates: start: 201306
  2. BABY ASPIRIN (ACETYLSALIC ACID) (TABLETS) [Concomitant]
  3. LIPITOR (ATORVASTATIN) (TABLETS) [Concomitant]
  4. HYDROCODONE / ACETAMINOPHEN (REMEDEINE) (TABLETS) [Concomitant]
  5. ISORDIL (ISOSORBIDE DINITRATE) (TABLETS) [Concomitant]
  6. METOPROLOL (TABLETS) [Concomitant]
  7. POTASSIUM CHLORIDE (TABLETS) [Concomitant]
  8. ZOMETA (ZOLEDRONIC ACID) (INJECTION) [Concomitant]

REACTIONS (3)
  - Pancytopenia [None]
  - Neutrophil count decreased [None]
  - Blood creatinine increased [None]
